FAERS Safety Report 17768733 (Version 1)
Quarter: 2020Q2

REPORT INFORMATION
  Report Type: Spontaneous
  Country: US (occurrence: US)
  Receive Date: 20200512
  Receipt Date: 20200512
  Transmission Date: 20200714
  Serious: No
  Sender: FDA-Public Use
  Company Number: US-JNJFOC-20200412199

PATIENT

DRUGS (1)
  1. IMODIUM A-D [Suspect]
     Active Substance: LOPERAMIDE HYDROCHLORIDE
     Indication: PRODUCT USED FOR UNKNOWN INDICATION
     Dosage: DURATION:  FOR APPROX. 1 1/2 MONTHS
     Route: 048

REACTIONS (3)
  - Product use issue [Unknown]
  - Peripheral swelling [Unknown]
  - Joint swelling [Unknown]
